FAERS Safety Report 8054452-9 (Version None)
Quarter: 2012Q1

REPORT INFORMATION
  Report Type: 
  Country: None (occurrence: None)
  Receive Date: 20120118
  Receipt Date: 20120113
  Transmission Date: 20120608
  Serious: Yes (Hospitalization)
  Sender: FDA-Public Use
  Company Number: US-ABBOTT-12P-163-0893017-00

PATIENT
  Age: 41 Year
  Sex: Female

DRUGS (5)
  1. HUMIRA [Suspect]
     Indication: CROHN'S DISEASE
     Route: 058
     Dates: start: 20110630, end: 20110630
  2. NEXIUM [Concomitant]
     Indication: PRODUCT USED FOR UNKNOWN INDICATION
  3. HUMIRA [Suspect]
     Dates: start: 20110728, end: 20110728
  4. HUMIRA [Suspect]
     Route: 058
     Dates: start: 20110714, end: 20110714
  5. PENTASA [Concomitant]
     Indication: PRODUCT USED FOR UNKNOWN INDICATION

REACTIONS (7)
  - CROHN'S DISEASE [None]
  - VOMITING [None]
  - MALAISE [None]
  - ABDOMINAL PAIN [None]
  - NAUSEA [None]
  - CHILLS [None]
  - DRUG INTOLERANCE [None]
